FAERS Safety Report 13278070 (Version 11)
Quarter: 2022Q3

REPORT INFORMATION
  Report Type: Spontaneous
  Country: US (occurrence: US)
  Receive Date: 20170228
  Receipt Date: 20220916
  Transmission Date: 20221027
  Serious: Yes (Disabling, Other)
  Sender: FDA-Public Use
  Company Number: US-PFIZER INC-2017081928

PATIENT
  Age: 64 Year
  Sex: Female
  Weight: 93 kg

DRUGS (7)
  1. PRISTIQ EXTENDED-RELEASE [Suspect]
     Active Substance: DESVENLAFAXINE SUCCINATE
     Indication: Depression
     Dosage: 50 MG, 1X/DAY (AT BEDTIME)
     Route: 048
     Dates: start: 1996
  2. PRISTIQ EXTENDED-RELEASE [Suspect]
     Active Substance: DESVENLAFAXINE SUCCINATE
     Indication: Neuropathy peripheral
     Dosage: 20 MG, 1X/DAY
     Dates: start: 2000
  3. PRISTIQ EXTENDED-RELEASE [Suspect]
     Active Substance: DESVENLAFAXINE SUCCINATE
     Indication: Generalised anxiety disorder
     Dosage: 50 MG, DAILY
     Route: 048
  4. CANNABIDIOL [Concomitant]
     Active Substance: CANNABIDIOL
     Dosage: UNK
     Dates: start: 201901
  5. VOLTAREN [Concomitant]
     Active Substance: DICLOFENAC SODIUM
     Dosage: UNK
  6. PENETREX [Concomitant]
     Active Substance: ENOXACIN
     Dosage: UNK
     Route: 061
     Dates: start: 2017
  7. VICTOZA [Concomitant]
     Active Substance: LIRAGLUTIDE
     Dosage: UNK

REACTIONS (14)
  - Sarcoidosis [Not Recovered/Not Resolved]
  - Condition aggravated [Not Recovered/Not Resolved]
  - Foot fracture [Unknown]
  - Lipoatrophy [Unknown]
  - Surgery [Unknown]
  - Drug effective for unapproved indication [Unknown]
  - Bronchitis [Unknown]
  - Nasopharyngitis [Not Recovered/Not Resolved]
  - Peripheral swelling [Unknown]
  - Weight fluctuation [Unknown]
  - Skin ulcer [Unknown]
  - Confusional state [Unknown]
  - Malaise [Unknown]
  - Localised infection [Unknown]

NARRATIVE: CASE EVENT DATE: 20000101
